FAERS Safety Report 6542135-3 (Version None)
Quarter: 2010Q1

REPORT INFORMATION
  Report Type: 
  Country: None (occurrence: None)
  Receive Date: 20100119
  Receipt Date: 20100112
  Transmission Date: 20100710
  Serious: Yes (Other)
  Sender: FDA-Public Use
  Company Number: BE-KINGPHARMUSA00001-K201000028

PATIENT

DRUGS (1)
  1. AVINZA [Suspect]
     Dosage: UNK
     Route: 042

REACTIONS (8)
  - ARTERIAL DISORDER [None]
  - DRUG ABUSE [None]
  - EMBOLISM [None]
  - ERYTHEMA [None]
  - PAIN IN EXTREMITY [None]
  - PERIPHERAL ISCHAEMIA [None]
  - VASCULAR INJURY [None]
  - VASCULAR PSEUDOANEURYSM [None]
